FAERS Safety Report 26106516 (Version 1)
Quarter: 2025Q4

REPORT INFORMATION
  Report Type: Spontaneous
  Country: CN (occurrence: CN)
  Receive Date: 20251201
  Receipt Date: 20251201
  Transmission Date: 20260118
  Serious: Yes (Death, Other)
  Sender: STRIDES
  Company Number: CN-STRIDES ARCOLAB LIMITED-2025SP014689

PATIENT

DRUGS (4)
  1. FUROSEMIDE [Suspect]
     Active Substance: FUROSEMIDE
     Indication: Cardiac failure chronic
     Dosage: UNK
     Route: 065
  2. FUROSEMIDE [Suspect]
     Active Substance: FUROSEMIDE
     Indication: Pulse abnormal
  3. NESIRITIDE [Suspect]
     Active Substance: NESIRITIDE
     Indication: Cardiac failure chronic
     Dosage: UNK
     Route: 065
  4. NESIRITIDE [Suspect]
     Active Substance: NESIRITIDE
     Indication: Pulse abnormal

REACTIONS (1)
  - Drug ineffective for unapproved indication [Fatal]
